FAERS Safety Report 20083184 (Version 1)
Quarter: 2021Q4

REPORT INFORMATION
  Report Type: Spontaneous
  Country: DE (occurrence: DE)
  Receive Date: 20211117
  Receipt Date: 20211117
  Transmission Date: 20220303
  Serious: Yes (Congenital Anomaly, Other)
  Sender: FDA-Public Use
  Company Number: DE-EMBRYOTOX-202004975

PATIENT
  Sex: Female
  Weight: 2.91 kg

DRUGS (3)
  1. LEVETIRACETAM [Suspect]
     Active Substance: LEVETIRACETAM
     Indication: Temporal lobe epilepsy
     Dosage: 3500 [MG/D (BIS 2500) ], (0. - 39.5. GESTATIONAL WEEK)
     Route: 064
     Dates: start: 20200216, end: 20201120
  2. FOLIC ACID [Concomitant]
     Active Substance: FOLIC ACID
     Indication: Vitamin supplementation
     Dosage: 5 MILLIGRAM, QD, (15.5. - 39.4. GESTATIONAL WEEK)
     Route: 064
     Dates: start: 20200605, end: 20201119
  3. BOOSTRIX [Concomitant]
     Active Substance: TETANUS TOXOID, REDUCED DIPHTHERIA TOXOID AND ACELLULAR PERTUSSIS VACCINE, ADSORBED ANTIGENS
     Indication: Immunisation
     Dosage: UNK
     Route: 064
     Dates: start: 20200914, end: 20200914

REACTIONS (3)
  - Ankyloglossia congenital [Unknown]
  - Lymphangioma [Unknown]
  - Foetal exposure during pregnancy [Recovered/Resolved]

NARRATIVE: CASE EVENT DATE: 20201120
